FAERS Safety Report 8924503 (Version 1)
Quarter: 2012Q4

REPORT INFORMATION
  Report Type: 
  Country: US (occurrence: US)
  Receive Date: 20121126
  Receipt Date: 20121126
  Transmission Date: 20130627
  Serious: Yes (Other)
  Sender: FDA-Public Use
  Company Number: US-ASTRAZENECA-2012SE87372

PATIENT
  Age: 56 Year
  Sex: Female
  Weight: 83.9 kg

DRUGS (7)
  1. SEROQUEL [Suspect]
     Indication: PANIC ATTACK
     Route: 048
  2. SEROQUEL [Suspect]
     Indication: HALLUCINATION, AUDITORY
     Route: 048
  3. SEROQUEL [Suspect]
     Indication: PANIC ATTACK
     Dosage: 200 IN THE MORNING, 200 IN THE NOON AND 400 MG IN THE NIGHT
     Route: 048
  4. SEROQUEL [Suspect]
     Indication: HALLUCINATION, AUDITORY
     Dosage: 200 IN THE MORNING, 200 IN THE NOON AND 400 MG IN THE NIGHT
     Route: 048
  5. GEODON [Suspect]
     Indication: PANIC ATTACK
     Dates: end: 201210
  6. GEODON [Suspect]
     Indication: HALLUCINATION, AUDITORY
     Dates: end: 201210
  7. ALPRAZOLAM [Suspect]
     Indication: PANIC ATTACK
     Dosage: generic

REACTIONS (7)
  - Dyspnoea [Unknown]
  - Hypertension [Recovered/Resolved]
  - Malaise [Not Recovered/Not Resolved]
  - Adverse event [Unknown]
  - Blood glucose increased [Recovered/Resolved]
  - Muscle spasms [Unknown]
  - Off label use [Unknown]
